FAERS Safety Report 17185912 (Version 2)
Quarter: 2020Q1

REPORT INFORMATION
  Report Type: Spontaneous
  Country: IT (occurrence: IT)
  Receive Date: 20191220
  Receipt Date: 20200330
  Transmission Date: 20200409
  Serious: Yes (Hospitalization, Other)
  Sender: FDA-Public Use
  Company Number: IT-SA-2019SA347746

PATIENT
  Sex: Female

DRUGS (1)
  1. LEMTRADA [Suspect]
     Active Substance: ALEMTUZUMAB
     Dosage: UNK UNK, UNK
     Route: 041
     Dates: start: 201901, end: 201901

REACTIONS (7)
  - Dyspnoea [Unknown]
  - Stress cardiomyopathy [Unknown]
  - Chest pain [Unknown]
  - Autoimmune myocarditis [Unknown]
  - Headache [Unknown]
  - Nervous system disorder [Unknown]
  - Pregnancy [Unknown]

NARRATIVE: CASE EVENT DATE: 2019
